FAERS Safety Report 12862015 (Version 1)
Quarter: 2016Q4

REPORT INFORMATION
  Report Type: Spontaneous
  Country: US (occurrence: US)
  Receive Date: 20161018
  Receipt Date: 20161018
  Transmission Date: 20170207
  Serious: Yes (Hospitalization)
  Sender: FDA-Public Use
  Company Number: None

PATIENT
  Age: 53 Year
  Sex: Male
  Weight: 190.4 kg

DRUGS (1)
  1. DULOXETINE. [Suspect]
     Active Substance: DULOXETINE
     Indication: POST-TRAUMATIC STRESS DISORDER
     Route: 048
     Dates: start: 20160825

REACTIONS (12)
  - Tinnitus [None]
  - Fall [None]
  - Presyncope [None]
  - Nausea [None]
  - Condition aggravated [None]
  - Tunnel vision [None]
  - Nightmare [None]
  - Flashback [None]
  - Dizziness [None]
  - Dyspnoea [None]
  - Urinary incontinence [None]
  - Dysstasia [None]

NARRATIVE: CASE EVENT DATE: 20160928
